FAERS Safety Report 6749794-0 (Version None)
Quarter: 2010Q2

REPORT INFORMATION
  Report Type: 
  Country: None (occurrence: None)
  Receive Date: 20100601
  Receipt Date: 20100521
  Transmission Date: 20101027
  Serious: Yes (Life-Threatening)
  Sender: FDA-Public Use
  Company Number: US-MERCK-1005USA03778

PATIENT
  Age: 14 Year
  Sex: Female

DRUGS (5)
  1. SINGULAIR [Suspect]
     Indication: ASTHMA
     Route: 048
  2. SINGULAIR [Suspect]
     Indication: HYPERSENSITIVITY
     Route: 048
  3. ALBUTEROL [Concomitant]
     Route: 065
  4. PULMICORT [Suspect]
     Route: 065
  5. BENADRYL [Concomitant]
     Route: 065

REACTIONS (3)
  - ASTHMA [None]
  - INAPPROPRIATE SCHEDULE OF DRUG ADMINISTRATION [None]
  - SLEEP DISORDER [None]
